FAERS Safety Report 17393101 (Version 1)
Quarter: 2020Q1

REPORT INFORMATION
  Report Type: Spontaneous
  Country: US (occurrence: US)
  Receive Date: 20200207
  Receipt Date: 20200207
  Transmission Date: 20200409
  Serious: No
  Sender: FDA-Public Use
  Company Number: US-MIKART, LLC-2079950

PATIENT
  Age: 5 Year
  Sex: Male

DRUGS (2)
  1. DEXTROAMPHETAMINE SULFATE. [Suspect]
     Active Substance: DEXTROAMPHETAMINE SULFATE
     Indication: ATTENTION DEFICIT/HYPERACTIVITY DISORDER
     Route: 048
     Dates: start: 201910
  2. GUANFACINE. [Concomitant]
     Active Substance: GUANFACINE
     Dates: start: 2016

REACTIONS (2)
  - Product dose omission [Unknown]
  - Hyperresponsive to stimuli [Recovered/Resolved]

NARRATIVE: CASE EVENT DATE: 201912
